FAERS Safety Report 7003215-1 (Version None)
Quarter: 2010Q3

REPORT INFORMATION
  Report Type: 
  Country: None (occurrence: None)
  Receive Date: 20100920
  Receipt Date: 20100909
  Transmission Date: 20110219
  Serious: Yes (Congenital Anomaly)
  Sender: FDA-Public Use
  Company Number: DE-ASTRAZENECA-2010SE42517

PATIENT
  Age: 0 Week

DRUGS (1)
  1. PULMICORT [Suspect]
     Route: 064

REACTIONS (1)
  - CLEFT PALATE [None]
